FAERS Safety Report 8225774-3 (Version None)
Quarter: 2012Q1

REPORT INFORMATION
  Report Type: 
  Country: None (occurrence: None)
  Receive Date: 20120321
  Receipt Date: 20120313
  Transmission Date: 20120608
  Serious: Yes (Other)
  Sender: FDA-Public Use
  Company Number: US-ELI_LILLY_AND_COMPANY-US201203004288

PATIENT
  Sex: Female

DRUGS (5)
  1. METFORMIN HCL [Concomitant]
     Dosage: UNK
  2. HUMULIN 70/30 [Suspect]
     Dosage: 40 U, BID
     Route: 065
     Dates: start: 20070101
  3. HUMULIN 70/30 [Suspect]
     Indication: DIABETES MELLITUS
     Dosage: 40 U, BID
     Route: 065
     Dates: start: 20070101
  4. GLIPIZIDE [Concomitant]
     Dosage: UNK
  5. PRAVASTATIN [Concomitant]
     Dosage: UNK

REACTIONS (7)
  - BLOOD GLUCOSE INCREASED [None]
  - DYSPNOEA [None]
  - URTICARIA [None]
  - DYSPHONIA [None]
  - PRURITUS [None]
  - FEELING ABNORMAL [None]
  - INTENTIONAL DRUG MISUSE [None]
